FAERS Safety Report 17115368 (Version 3)
Quarter: 2020Q1

REPORT INFORMATION
  Report Type: Spontaneous
  Country: US (occurrence: US)
  Receive Date: 20191205
  Receipt Date: 20200217
  Transmission Date: 20200409
  Serious: Yes (Other)
  Sender: FDA-Public Use
  Company Number: US-PFIZER INC-2019520730

PATIENT
  Age: 63 Year
  Sex: Female

DRUGS (2)
  1. XELJANZ [Suspect]
     Active Substance: TOFACITINIB CITRATE
     Dosage: UNK, 1X/DAY [1/4 -1/2 TABLET ONCE A DAY]
     Route: 048
  2. XELJANZ [Suspect]
     Active Substance: TOFACITINIB CITRATE
     Indication: RHEUMATOID ARTHRITIS
     Dosage: 10 MG, UNK

REACTIONS (9)
  - Choking [Unknown]
  - Wrong technique in product usage process [Unknown]
  - Cough [Recovered/Resolved]
  - Abdominal pain upper [Unknown]
  - Stress urinary incontinence [Unknown]
  - Sneezing [Unknown]
  - Vomiting [Unknown]
  - Influenza like illness [Unknown]
  - Hypersensitivity [Unknown]
